FAERS Safety Report 14971389 (Version 1)
Quarter: 2018Q2

REPORT INFORMATION
  Report Type: Spontaneous
  Country: GB (occurrence: GB)
  Receive Date: 20180604
  Receipt Date: 20180604
  Transmission Date: 20180711
  Serious: Yes (Hospitalization, Other)
  Sender: FDA-Public Use
  Company Number: GB-ELI_LILLY_AND_COMPANY-GB201805011698

PATIENT
  Age: 82 Year
  Sex: Male

DRUGS (2)
  1. HUMULIN N [Suspect]
     Active Substance: INSULIN HUMAN
     Indication: DIABETES MELLITUS
     Dosage: 6 U, UNKNOWN
     Route: 065
     Dates: start: 201705
  2. HUMALOG MIX50/50 [Suspect]
     Active Substance: INSULIN LISPRO
     Indication: PRODUCT USED FOR UNKNOWN INDICATION
     Dosage: UNK, UNKNOWN
     Route: 065

REACTIONS (5)
  - Malaise [Recovering/Resolving]
  - Renal failure [Unknown]
  - Deafness [Unknown]
  - Malaise [Unknown]
  - Accidental underdose [Unknown]

NARRATIVE: CASE EVENT DATE: 201704
